FAERS Safety Report 6657341-7 (Version None)
Quarter: 2010Q1

REPORT INFORMATION
  Report Type: 
  Country: None (occurrence: None)
  Receive Date: 20100325
  Receipt Date: 20100316
  Transmission Date: 20100710
  Serious: Yes (Death)
  Sender: FDA-Public Use
  Company Number: 20108437

PATIENT
  Age: 59 Year
  Sex: Male

DRUGS (1)
  1. LIORESAL [Suspect]
     Indication: MUSCLE SPASTICITY
     Dosage: 959.3 MCG, DAILY, INTRATHECAL
     Route: 037

REACTIONS (1)
  - POST PROCEDURAL COMPLICATION [None]
